FAERS Safety Report 6491187-8 (Version None)
Quarter: 2009Q4

REPORT INFORMATION
  Report Type: 
  Country: None (occurrence: None)
  Receive Date: 20091207
  Receipt Date: 20091201
  Transmission Date: 20100525
  Serious: Yes (Hospitalization)
  Sender: FDA-Public Use
  Company Number: 2009SP011629

PATIENT
  Age: 36 Year
  Sex: Female
  Weight: 58 kg

DRUGS (26)
  1. PEG-INTRON [Suspect]
     Indication: HEPATITIS C
     Dates: start: 20080910, end: 20090527
  2. RIBAVIRIN [Suspect]
     Indication: HEPATITIS C
     Dates: start: 20080910, end: 20090601
  3. LOXOPROFEN (LOXOPROFEN) [Suspect]
     Indication: BACK PAIN
     Dates: start: 20080911, end: 20090220
  4. LOXOPROFEN (LOXOPROFEN) [Suspect]
     Indication: HEADACHE
     Dates: start: 20080911, end: 20090220
  5. LOXOPROFEN (LOXOPROFEN) [Suspect]
     Indication: PYREXIA
     Dates: start: 20080911, end: 20090220
  6. LANSOPRAZOLE [Suspect]
     Indication: ULCER
     Dates: start: 20080919, end: 20080925
  7. LANSOPRAZOLE [Suspect]
     Indication: ULCER
     Dates: start: 20081001, end: 20090617
  8. ETIZOLAM (ETIZOLAM) [Suspect]
     Indication: INSOMNIA
     Dates: start: 20080916, end: 20080916
  9. ETIZOLAM (ETIZOLAM) [Suspect]
     Indication: INSOMNIA
     Dates: start: 20080919, end: 20080920
  10. ETIZOLAM (ETIZOLAM) [Suspect]
     Indication: INSOMNIA
     Dates: start: 20080921, end: 20081029
  11. ETIZOLAM (ETIZOLAM) [Suspect]
     Indication: INSOMNIA
     Dates: start: 20081105, end: 20090531
  12. DOMPERIDONE (DOMPERIDONE [Suspect]
     Indication: NAUSEA
     Dates: start: 20081029, end: 20090110
  13. HIRUDOID SOFT (HEPARINOID) (HEPARINOTD) [Suspect]
     Indication: PRURITUS
     Dates: start: 20081105, end: 20081224
  14. HIRUDOID SOFT (HEPARINOID) (HEPARINOTD) [Suspect]
     Indication: PRURITUS GENERALISED
     Dates: start: 20081105, end: 20081224
  15. RESTAMIN (DIPHENHYDRAMINE) [Suspect]
     Indication: PRURITUS
     Dates: start: 20080913, end: 20080915
  16. RESTAMIN (DIPHENHYDRAMINE) [Suspect]
     Indication: RASH
     Dates: start: 20080913, end: 20080915
  17. RESTAMIN (DIPHENHYDRAMINE) [Suspect]
     Indication: PRURITUS
     Dates: start: 20081005, end: 20090311
  18. RESTAMIN (DIPHENHYDRAMINE) [Suspect]
     Indication: RASH
     Dates: start: 20081005, end: 20090311
  19. RESTAMIN (DI PHENHYDRAMINE) [Suspect]
     Indication: PRURITUS
     Dates: start: 20080913, end: 20080916
  20. RESTAMIN (DI PHENHYDRAMINE) [Suspect]
     Indication: RASH
     Dates: start: 20080913, end: 20080916
  21. PEG-INTRON [Suspect]
  22. RIBAVIRIN [Suspect]
  23. EBASTINE [Concomitant]
  24. TOWATHIEM (NON-PYRINE COLD PREPARATION (SALICYLAMIDE, ACETAMINOPHEN, A [Concomitant]
  25. MUCOSAL [Concomitant]
  26. NEODAY [Concomitant]

REACTIONS (5)
  - CAESAREAN SECTION [None]
  - DRUG EXPOSURE DURING PREGNANCY [None]
  - PATERNAL DRUGS AFFECTING FOETUS [None]
  - THREATENED LABOUR [None]
  - TWIN PREGNANCY [None]
